FAERS Safety Report 9895627 (Version 2)
Quarter: 2014Q1

REPORT INFORMATION
  Report Type: Spontaneous
  Country: US (occurrence: US)
  Receive Date: 20140213
  Receipt Date: 20140213
  Transmission Date: 20141002
  Serious: No
  Sender: FDA-Public Use
  Company Number: US-BRISTOL-MYERS SQUIBB COMPANY-17389040

PATIENT
  Age: 54 Year
  Sex: Female
  Weight: 56.69 kg

DRUGS (3)
  1. ABATACEPT SUBQ INJECTION 125MG/ML [Suspect]
     Indication: RHEUMATOID ARTHRITIS
     Dosage: DATE OF LAST INJECTION: 10FEB2013
     Route: 058
     Dates: start: 20121119
  2. DURAGESIC [Concomitant]
  3. OXYCODONE [Concomitant]

REACTIONS (2)
  - Eye disorder [Unknown]
  - Nausea [Not Recovered/Not Resolved]
